FAERS Safety Report 15422564 (Version 1)
Quarter: 2018Q3

REPORT INFORMATION
  Report Type: Spontaneous
  Country: US (occurrence: US)
  Receive Date: 20180925
  Receipt Date: 20180925
  Transmission Date: 20181010
  Serious: No
  Sender: FDA-Public Use
  Company Number: US-DRREDDYS-USA/USA/17/0093761

PATIENT
  Sex: Female

DRUGS (5)
  1. TEMOVATE [Concomitant]
     Active Substance: CLOBETASOL PROPIONATE
     Indication: RASH
     Route: 061
  2. DIOVAN HCT [Concomitant]
     Active Substance: HYDROCHLOROTHIAZIDE\VALSARTAN
     Indication: BLOOD PRESSURE MEASUREMENT
     Route: 048
  3. PRAVACHOL [Concomitant]
     Active Substance: PRAVASTATIN SODIUM
     Indication: BLOOD CHOLESTEROL
     Route: 048
  4. VITAMIN B12 [Concomitant]
     Active Substance: CYANOCOBALAMIN
     Indication: NEUROPATHY PERIPHERAL
     Dosage: 1000 MCG/ML
     Route: 030
  5. AUGMENTIN [Suspect]
     Active Substance: AMOXICILLIN\CLAVULANATE POTASSIUM
     Indication: PRODUCT USED FOR UNKNOWN INDICATION
     Route: 065

REACTIONS (2)
  - Diarrhoea [Unknown]
  - Drug hypersensitivity [Unknown]
